FAERS Safety Report 8547413 (Version 6)
Quarter: 2016Q3

REPORT INFORMATION
  Report Type: Spontaneous
  Country: JP (occurrence: JP)
  Receive Date: 20120504
  Receipt Date: 20160705
  Transmission Date: 20161109
  Serious: Yes (Hospitalization, Other)
  Sender: FDA-Public Use
  Company Number: JP-JNJFOC-20120501374

PATIENT
  Age: 0 Day
  Sex: Male
  Weight: 2.46 kg

DRUGS (10)
  1. PHENOBARBITAL. [Suspect]
     Active Substance: PHENOBARBITAL
     Indication: PRODUCT USED FOR UNKNOWN INDICATION
     Route: 042
     Dates: start: 20111027, end: 20111031
  2. SEVOFLURANE. [Concomitant]
     Active Substance: SEVOFLURANE
     Indication: GENERAL ANAESTHESIA
     Route: 042
     Dates: start: 20111025, end: 20111025
  3. FENTANYL CITRATE. [Suspect]
     Active Substance: FENTANYL CITRATE
     Indication: FOETAL EXPOSURE DURING PREGNANCY
     Route: 064
     Dates: start: 20111025, end: 20111025
  4. PHENOBARBITAL. [Suspect]
     Active Substance: PHENOBARBITAL
     Indication: PRODUCT USED FOR UNKNOWN INDICATION
     Route: 042
     Dates: start: 20111027, end: 20111027
  5. ULTIVA [Suspect]
     Active Substance: REMIFENTANIL HYDROCHLORIDE
     Indication: FOETAL EXPOSURE DURING PREGNANCY
     Route: 064
     Dates: start: 20111025, end: 20111025
  6. NITROUS OXIDE. [Concomitant]
     Active Substance: NITROUS OXIDE
     Indication: GENERAL ANAESTHESIA
     Route: 042
  7. ROCURONIUM BROMIDE. [Concomitant]
     Active Substance: ROCURONIUM BROMIDE
     Indication: MUSCLE RELAXANT THERAPY
     Route: 065
  8. DUROTEP MT [Suspect]
     Active Substance: FENTANYL
     Indication: FOETAL EXPOSURE DURING PREGNANCY
     Route: 064
     Dates: start: 2005, end: 20111027
  9. METOCLOPRAMIDE. [Suspect]
     Active Substance: METOCLOPRAMIDE
     Indication: FOETAL EXPOSURE DURING PREGNANCY
     Route: 064
  10. MORPHINE HYDROCHLORIDE [Suspect]
     Active Substance: MORPHINE HYDROCHLORIDE
     Indication: FOETAL EXPOSURE DURING PREGNANCY
     Route: 064

REACTIONS (11)
  - Feeding disorder [Recovering/Resolving]
  - Irritability [Recovering/Resolving]
  - Hyperreflexia [Recovering/Resolving]
  - Blood alkaline phosphatase increased [Not Recovered/Not Resolved]
  - Drug withdrawal syndrome neonatal [Recovering/Resolving]
  - Exposure during breast feeding [Unknown]
  - Analgesic drug level increased [Not Recovered/Not Resolved]
  - Premature baby [Not Recovered/Not Resolved]
  - Transient tachypnoea of the newborn [Unknown]
  - Vomiting [Recovering/Resolving]
  - Gamma-glutamyltransferase increased [Not Recovered/Not Resolved]

NARRATIVE: CASE EVENT DATE: 20111025
